FAERS Safety Report 6368428-0 (Version None)
Quarter: 2009Q3

REPORT INFORMATION
  Report Type: 
  Country: None (occurrence: None)
  Receive Date: 20090922
  Receipt Date: 20090917
  Transmission Date: 20100115
  Serious: Yes (Other)
  Sender: FDA-Public Use
  Company Number: NL-AVENTIS-200915451EU

PATIENT
  Age: 47 Year
  Sex: Male

DRUGS (2)
  1. ENOXAPARIN [Suspect]
     Indication: DEEP VEIN THROMBOSIS
     Route: 058
     Dates: start: 20090818, end: 20090904
  2. ACENOCOUMAROL [Suspect]
     Indication: DEEP VEIN THROMBOSIS
     Dosage: DOSE: UNK
     Route: 048
     Dates: start: 20090818

REACTIONS (1)
  - HEPATIC ENZYME INCREASED [None]
